FAERS Safety Report 9317654 (Version 1)
Quarter: 2013Q2

REPORT INFORMATION
  Report Type: Spontaneous
  Country: US (occurrence: US)
  Receive Date: 20130530
  Receipt Date: 20130530
  Transmission Date: 20140414
  Serious: No
  Sender: FDA-Public Use
  Company Number: US-NOVEN-12US004979

PATIENT
  Age: 8 Year
  Sex: Male
  Weight: 36.74 kg

DRUGS (2)
  1. DAYTRANA [Suspect]
     Indication: ATTENTION DEFICIT/HYPERACTIVITY DISORDER
     Dosage: 20 MG, QD
     Route: 062
     Dates: start: 20120702
  2. ZOLOFT [Concomitant]
     Indication: ANXIETY
     Dosage: 50 MG, QD
     Route: 048

REACTIONS (2)
  - Abnormal behaviour [Unknown]
  - Product quality issue [Not Recovered/Not Resolved]
